FAERS Safety Report 6426945-9 (Version None)
Quarter: 2009Q4

REPORT INFORMATION
  Report Type: 
  Country: None (occurrence: None)
  Receive Date: 20091103
  Receipt Date: 20091103
  Transmission Date: 20100525
  Serious: No
  Sender: FDA-Public Use
  Company Number: None

PATIENT
  Age: 83 Year
  Sex: Male

DRUGS (2)
  1. WARFARIN SODIUM [Suspect]
     Dates: start: 20081031, end: 20081126
  2. NAPROXEN [Suspect]
     Dosage: 1 TAB BID PO
     Route: 048
     Dates: start: 20081030, end: 20081126

REACTIONS (1)
  - GASTRIC HAEMORRHAGE [None]
